FAERS Safety Report 7027347-7 (Version None)
Quarter: 2010Q4

REPORT INFORMATION
  Report Type: 
  Country: None (occurrence: None)
  Receive Date: 20101004
  Receipt Date: 20100923
  Transmission Date: 20110411
  Serious: Yes (Other)
  Sender: FDA-Public Use
  Company Number: US-CELGENEUS-163-20785-10092347

PATIENT
  Sex: Female

DRUGS (4)
  1. THALOMID [Suspect]
     Indication: MULTIPLE MYELOMA
     Dosage: 100-50MG
     Route: 048
     Dates: start: 20060101
  2. THALOMID [Suspect]
     Route: 048
     Dates: start: 20060301
  3. THALOMID [Suspect]
     Route: 048
     Dates: start: 20060801
  4. THALOMID [Suspect]
     Route: 048
     Dates: start: 20080301

REACTIONS (1)
  - NEOPLASM [None]
